FAERS Safety Report 6697679-0 (Version None)
Quarter: 2010Q2

REPORT INFORMATION
  Report Type: 
  Country: None (occurrence: None)
  Receive Date: 20100426
  Receipt Date: 20100422
  Transmission Date: 20101027
  Serious: Yes (Other)
  Sender: FDA-Public Use
  Company Number: FR-MERCK-1004FRA00116

PATIENT
  Age: 72 Year
  Sex: Female

DRUGS (5)
  1. HYZAAR [Suspect]
     Route: 048
     Dates: start: 20000101
  2. HYCAMTIN [Suspect]
     Indication: METASTASES TO PERITONEUM
     Route: 041
     Dates: start: 20091123
  3. ZOPHREN [Suspect]
     Indication: NAUSEA
     Route: 041
     Dates: start: 20091123
  4. OMEPRAZOLE [Suspect]
     Route: 048
  5. LIPANTHYL [Suspect]
     Route: 048

REACTIONS (6)
  - DRY SKIN [None]
  - ECZEMA [None]
  - PAIN [None]
  - SCLERODERMA [None]
  - SKIN EXFOLIATION [None]
  - SKIN ULCER [None]
